FAERS Safety Report 6831278-2 (Version None)
Quarter: 2010Q3

REPORT INFORMATION
  Report Type: 
  Country: None (occurrence: None)
  Receive Date: 20100712
  Receipt Date: 20100702
  Transmission Date: 20110219
  Serious: Yes (Hospitalization)
  Sender: FDA-Public Use
  Company Number: FR-PFIZER INC-2010082825

PATIENT
  Age: 81 Year
  Sex: Male

DRUGS (20)
  1. VFEND [Suspect]
     Dosage: 400 MG, 2X/DAY
     Route: 048
     Dates: start: 20100201
  2. VFEND [Suspect]
     Dosage: 200 MG, 2X/DAY
     Route: 048
     Dates: end: 20100419
  3. SERETIDE [Concomitant]
  4. BETAINE CITRATE [Concomitant]
  5. SPASFON [Concomitant]
  6. DICETEL [Concomitant]
  7. CORTANCYL [Concomitant]
  8. PANFUREX [Concomitant]
     Dosage: UNK
  9. DI-ANTALVIC [Concomitant]
     Dosage: UNK
  10. CACIT [Concomitant]
  11. FOSAMAX [Concomitant]
  12. TPN [Concomitant]
  13. KARDEGIC [Concomitant]
  14. BEDELIX [Concomitant]
  15. LANSOPRAZOLE [Concomitant]
  16. TRANXENE [Concomitant]
  17. ZOLPIDEM [Concomitant]
     Dosage: UNK
  18. NITRODERM [Concomitant]
     Dosage: 1 DF, 1X/DAY
  19. ALDACTONE [Concomitant]
  20. FUROSEMIDE [Concomitant]

REACTIONS (2)
  - DIPLOPIA [None]
  - OPTIC DISCS BLURRED [None]
